FAERS Safety Report 5599804-1 (Version None)
Quarter: 2008Q1

REPORT INFORMATION
  Report Type: 
  Country: None (occurrence: None)
  Receive Date: 20080118
  Receipt Date: 20080118
  Transmission Date: 20080703
  Serious: No
  Sender: FDA-Public Use
  Company Number: None

PATIENT
  Age: 33 Year
  Sex: Female
  Weight: 68.0396 kg

DRUGS (1)
  1. CHANTIX [Suspect]
     Dosage: 1  TWICE DAILY  PO
     Route: 048
     Dates: start: 20071219, end: 20080115

REACTIONS (6)
  - APATHY [None]
  - CRYING [None]
  - DEPRESSION [None]
  - FLATULENCE [None]
  - INSOMNIA [None]
  - NAUSEA [None]
